FAERS Safety Report 4351146-8 (Version None)
Quarter: 2004Q2

REPORT INFORMATION
  Report Type: 
  Country: None (occurrence: None)
  Receive Date: 20040427
  Receipt Date: 20040422
  Transmission Date: 20050107
  Serious: Yes (Death)
  Sender: FDA-Public Use
  Company Number: FR-JNJFOC-20040404877

PATIENT
  Age: 35 Year
  Sex: Male

DRUGS (1)
  1. HALDOL [Suspect]
     Dosage: ORAL
     Route: 048

REACTIONS (1)
  - TOXICOLOGIC TEST ABNORMAL [None]
